FAERS Safety Report 10044568 (Version 1)
Quarter: 2014Q1

REPORT INFORMATION
  Report Type: Spontaneous
  Country: US (occurrence: US)
  Receive Date: 20140328
  Receipt Date: 20140328
  Transmission Date: 20141002
  Serious: Yes (Other)
  Sender: FDA-Public Use
  Company Number: US-PFIZER INC-2014086137

PATIENT
  Age: 54 Year
  Sex: Female
  Weight: 63.49 kg

DRUGS (5)
  1. LYRICA [Suspect]
     Indication: FIBROMYALGIA
     Dosage: 75 MG, 3X/DAY
  2. LYRICA [Suspect]
     Dosage: 200 MG, 3X/DAY
  3. CYMBALTA [Concomitant]
     Dosage: 60 MG, 2X/DAY
  4. FUROSEMIDE [Concomitant]
     Indication: DIURETIC THERAPY
     Dosage: 40 MG, DAILY
  5. FLEXERIL [Concomitant]
     Dosage: UNK

REACTIONS (3)
  - Back disorder [Unknown]
  - Perforated ulcer [Unknown]
  - Ulcer haemorrhage [Unknown]
